FAERS Safety Report 7552253-9 (Version None)
Quarter: 2011Q2

REPORT INFORMATION
  Report Type: 
  Country: None (occurrence: None)
  Receive Date: 20110616
  Receipt Date: 20030416
  Transmission Date: 20111010
  Serious: Yes (Death, Hospitalization)
  Sender: FDA-Public Use
  Company Number: PHHO2003AR02725

PATIENT
  Sex: Female

DRUGS (3)
  1. BACTRIM [Concomitant]
  2. PREDNISONE [Concomitant]
  3. CLOZAPINE [Suspect]
     Indication: SCHIZOPHRENIA
     Route: 048
     Dates: start: 19970102, end: 20030201

REACTIONS (7)
  - RESPIRATORY DISTRESS [None]
  - ACUTE MYELOMONOCYTIC LEUKAEMIA [None]
  - URINARY TRACT INFECTION [None]
  - THROMBOCYTOPENIA [None]
  - DERMATITIS BULLOUS [None]
  - ANAEMIA [None]
  - SHOCK [None]
